FAERS Safety Report 14135650 (Version 1)
Quarter: 2017Q4

REPORT INFORMATION
  Report Type: Spontaneous
  Country: US (occurrence: US)
  Receive Date: 20171027
  Receipt Date: 20171027
  Transmission Date: 20180321
  Serious: Yes (Hospitalization)
  Sender: FDA-Public Use
  Company Number: None

PATIENT
  Sex: Female
  Weight: 81 kg

DRUGS (5)
  1. CLARITIN [Concomitant]
     Active Substance: LORATADINE
  2. DEPO-PROVERA [Suspect]
     Active Substance: MEDROXYPROGESTERONE ACETATE
     Indication: CONTRACEPTION
     Route: 058
     Dates: start: 20170124
  3. WOMEN^S HEALTH VITAMINS [Concomitant]
  4. LAMICTAL (GENERIC) [Concomitant]
  5. XANAX [Concomitant]
     Active Substance: ALPRAZOLAM

REACTIONS (11)
  - Asthenia [None]
  - Back pain [None]
  - Crying [None]
  - Dizziness [None]
  - Weight increased [None]
  - Abdominal pain [None]
  - Fatigue [None]
  - Frustration tolerance decreased [None]
  - Nervousness [None]
  - Depression [None]
  - Palpitations [None]
